FAERS Safety Report 15880852 (Version 1)
Quarter: 2019Q1

REPORT INFORMATION
  Report Type: Spontaneous
  Country: FR (occurrence: FR)
  Receive Date: 20190128
  Receipt Date: 20190128
  Transmission Date: 20190417
  Serious: Yes (Hospitalization)
  Sender: FDA-Public Use
  Company Number: FR-TEVA-2019-FR-1003283

PATIENT
  Age: 91 Year
  Sex: Female
  Weight: 70 kg

DRUGS (10)
  1. CAFEINE (CITRATE DE) [Concomitant]
  2. STRESAM [Concomitant]
     Active Substance: ETIFOXINE
  3. CHOLECALCIFEROL [Concomitant]
     Active Substance: CHOLECALCIFEROL
  4. PERINDOPRIL [Suspect]
     Active Substance: PERINDOPRIL
     Indication: HYPERTENSION
     Dosage: 4 MILLIGRAM DAILY;
     Route: 048
     Dates: start: 201601, end: 20181210
  5. INDAPAMIDE. [Suspect]
     Active Substance: INDAPAMIDE
     Indication: HYPERTENSION
     Dosage: 1.25 MILLIGRAM DAILY;
     Route: 048
     Dates: start: 201601, end: 20181210
  6. OMEPRAZOLE. [Concomitant]
     Active Substance: OMEPRAZOLE
  7. PREVISCAN [Concomitant]
  8. DIGOXINE NATIVELLE [Concomitant]
     Active Substance: DIGOXIN
  9. PARACETAMOL [Concomitant]
     Active Substance: ACETAMINOPHEN
  10. COMPLEMENT ALIMENTAIRE [Concomitant]
     Active Substance: DIETARY SUPPLEMENT

REACTIONS (2)
  - Hypokalaemia [Recovering/Resolving]
  - Syncope [Recovered/Resolved]

NARRATIVE: CASE EVENT DATE: 20181209
